FAERS Safety Report 21525554 (Version 2)
Quarter: 2022Q4

REPORT INFORMATION
  Report Type: Spontaneous
  Country: US (occurrence: US)
  Receive Date: 20221030
  Receipt Date: 20221109
  Transmission Date: 20230112
  Serious: Yes (Life-Threatening, Hospitalization, Other)
  Sender: FDA-Public Use
  Company Number: US-drreddys-LIT/USA/22/0156447

PATIENT
  Sex: Male

DRUGS (14)
  1. LEVETIRACETAM [Suspect]
     Active Substance: LEVETIRACETAM
     Indication: Epileptic encephalopathy
     Route: 048
  2. LORAZEPAM [Suspect]
     Active Substance: LORAZEPAM
     Indication: Epileptic encephalopathy
  3. FOSPHENYTOIN SODIUM [Suspect]
     Active Substance: FOSPHENYTOIN SODIUM
     Indication: Epileptic encephalopathy
  4. PROPOFOL [Suspect]
     Active Substance: PROPOFOL
     Indication: Epileptic encephalopathy
  5. DIVALPROEX SODIUM [Suspect]
     Active Substance: DIVALPROEX SODIUM
     Indication: Epileptic encephalopathy
  6. CLOBAZAM [Suspect]
     Active Substance: CLOBAZAM
     Indication: Epileptic encephalopathy
  7. KETAMINE [Suspect]
     Active Substance: KETAMINE
     Indication: Epileptic encephalopathy
  8. PRIVIGEN [Suspect]
     Active Substance: HUMAN IMMUNOGLOBULIN G
     Indication: Epileptic encephalopathy
     Route: 042
  9. TOPIRAMATE [Suspect]
     Active Substance: TOPIRAMATE
     Indication: Epileptic encephalopathy
  10. MIDAZOLAM [Suspect]
     Active Substance: MIDAZOLAM
     Indication: Epileptic encephalopathy
  11. EPIDIOLEX [Suspect]
     Active Substance: CANNABIDIOL
     Indication: Epileptic encephalopathy
  12. ZONISAMIDE [Suspect]
     Active Substance: ZONISAMIDE
     Indication: Epileptic encephalopathy
  13. PHENOBARBITAL [Suspect]
     Active Substance: PHENOBARBITAL
     Indication: Epileptic encephalopathy
  14. LACOSAMIDE [Suspect]
     Active Substance: LACOSAMIDE
     Indication: Epileptic encephalopathy

REACTIONS (11)
  - Drug ineffective [Unknown]
  - Epileptic encephalopathy [Recovering/Resolving]
  - Condition aggravated [Recovering/Resolving]
  - Drug resistance [Unknown]
  - Hippocampal sclerosis [Unknown]
  - Developmental delay [Unknown]
  - Pneumatosis [Unknown]
  - Pneumonia [Unknown]
  - Pancreatitis [Unknown]
  - Pancytopenia [Unknown]
  - Product use in unapproved indication [Unknown]

NARRATIVE: CASE EVENT DATE: 20180101
